FAERS Safety Report 6566278-3 (Version None)
Quarter: 2010Q1

REPORT INFORMATION
  Report Type: 
  Country: None (occurrence: None)
  Receive Date: 20100202
  Receipt Date: 20100122
  Transmission Date: 20100710
  Serious: Yes (Hospitalization)
  Sender: FDA-Public Use
  Company Number: JP-BAYER-200914878BYL

PATIENT
  Age: 60 Year
  Sex: Male
  Weight: 67 kg

DRUGS (6)
  1. NEXAVAR [Suspect]
     Indication: HEPATIC NEOPLASM MALIGNANT
     Dosage: TOTAL DAILY DOSE: 800 MG  UNIT DOSE: 200 MG
     Route: 048
     Dates: start: 20091008, end: 20091119
  2. OMEPRAL [Concomitant]
     Indication: GASTRIC ULCER
     Route: 048
     Dates: start: 20051114
  3. URSO 250 [Concomitant]
     Indication: HEPATITIS C
     Route: 048
     Dates: start: 20051114
  4. PROHEPARUM [Concomitant]
     Indication: HEPATITIS C
     Route: 048
     Dates: start: 20051114
  5. GLYCYRON [Concomitant]
     Indication: HEPATITIS C
     Route: 048
     Dates: start: 20051114
  6. NU-LOTAN [Concomitant]
     Indication: HYPERTENSION
     Route: 048
     Dates: start: 20051114

REACTIONS (1)
  - HEPATIC FUNCTION ABNORMAL [None]
